FAERS Safety Report 23091144 (Version 1)
Quarter: 2023Q4

REPORT INFORMATION
  Report Type: Spontaneous
  Country: US (occurrence: None)
  Receive Date: 20231020
  Receipt Date: 20231020
  Transmission Date: 20240110
  Serious: Yes (Other)
  Sender: FDA-Public Use
  Company Number: None

PATIENT
  Age: 47 Year
  Sex: Female
  Weight: 66.4 kg

DRUGS (5)
  1. INFED [Suspect]
     Active Substance: IRON DEXTRAN
     Indication: Iron deficiency
     Dosage: OTHER FREQUENCY : ONCE;?
     Route: 042
     Dates: start: 20231016, end: 20231016
  2. Estradiol 0.025mg/24 hr transdermal patch weekly [Concomitant]
  3. Progesterone 100 mg orally daily [Concomitant]
  4. Sumatriptan 100 mg orally daily [Concomitant]
  5. Venlafaxine 75mg orally daily [Concomitant]

REACTIONS (4)
  - Chest discomfort [None]
  - Dizziness [None]
  - Throat irritation [None]
  - Infusion related reaction [None]

NARRATIVE: CASE EVENT DATE: 20231016
